FAERS Safety Report 13264466 (Version 1)
Quarter: 2017Q1

REPORT INFORMATION
  Report Type: Spontaneous
  Country: US (occurrence: US)
  Receive Date: 20170222
  Receipt Date: 20170222
  Transmission Date: 20170428
  Serious: No
  Sender: FDA-Public Use
  Company Number: None

PATIENT
  Age: 69 Year
  Sex: Male
  Weight: 60 kg

DRUGS (2)
  1. PROCHLORPERAZINE. [Suspect]
     Active Substance: PROCHLORPERAZINE
     Indication: NAUSEA
     Route: 048
     Dates: start: 20161006, end: 20161103
  2. PROCHLORPERAZINE. [Suspect]
     Active Substance: PROCHLORPERAZINE
     Indication: CARDIOVASCULAR DISORDER
     Route: 048
     Dates: start: 20161001, end: 20161109

REACTIONS (2)
  - Parkinsonism [None]
  - Tremor [None]

NARRATIVE: CASE EVENT DATE: 20161001
